FAERS Safety Report 5402492-8 (Version None)
Quarter: 2007Q3

REPORT INFORMATION
  Report Type: 
  Country: None (occurrence: None)
  Receive Date: 20070801
  Receipt Date: 20060725
  Transmission Date: 20080115
  Serious: No
  Sender: FDA-Public Use
  Company Number: A0613865A

PATIENT
  Sex: Female

DRUGS (1)
  1. IMITREX [Suspect]
     Indication: MIGRAINE

REACTIONS (8)
  - FEELING HOT [None]
  - HEAD DISCOMFORT [None]
  - HEADACHE [None]
  - MIGRAINE [None]
  - PAIN [None]
  - SOMNOLENCE [None]
  - THROAT TIGHTNESS [None]
  - TRISMUS [None]
